FAERS Safety Report 7514968-8 (Version None)
Quarter: 2011Q2

REPORT INFORMATION
  Report Type: 
  Country: None (occurrence: None)
  Receive Date: 20110601
  Receipt Date: 20110520
  Transmission Date: 20111010
  Serious: Yes (Other)
  Sender: FDA-Public Use
  Company Number: GB-AMGEN-GBRSP2011014087

PATIENT
  Age: 52 Year
  Sex: Female
  Weight: 64 kg

DRUGS (14)
  1. ROZEX                              /00012501/ [Concomitant]
     Indication: ROSACEA
     Dosage: 0.75 %, 2X/DAY
     Route: 061
  2. ALBUTEROL [Concomitant]
     Indication: DYSPNOEA
     Dosage: 1-2 2.5ML VIALS UP TO 4 TIMES DAILY
     Route: 055
  3. CALCIPOTRIOL [Concomitant]
     Indication: PSORIASIS
     Dosage: 0.005 %, 2X/DAY
     Route: 061
  4. BECLOMETHASONE DIPROPIONATE [Concomitant]
     Indication: DYSPNOEA
     Dosage: 100 UG, 2 PUFFS TWICE DAILY.
     Route: 055
  5. VENLAFAXINE [Concomitant]
     Indication: AFFECTIVE DISORDER
     Dosage: 150 MG, 1X/DAY
  6. ANTIDEPRESSANTS [Concomitant]
     Indication: DEPRESSION
  7. DIAZEPAM [Concomitant]
     Indication: ANXIETY
     Dosage: 5 MG, AS NEEDED
  8. EMULSIDERM [Concomitant]
     Indication: DRY SKIN
     Dosage: 300 ML, AS NEEDED
  9. ENBREL [Suspect]
     Indication: PSORIASIS
     Dosage: 50 MG, WEEKLY
     Route: 058
     Dates: start: 20101101
  10. ADALAT [Concomitant]
     Indication: BLOOD PRESSURE
     Dosage: UNK
  11. SIMVASTATIN [Concomitant]
     Indication: BLOOD CHOLESTEROL
     Dosage: 10 MG, 1X/DAY (NIGHTLY)
  12. ANTIHYPERTENSIVES [Concomitant]
     Indication: HYPERTENSION
  13. TRAMADOL HCL [Concomitant]
     Indication: PAIN
     Dosage: 100 MG, 2X/DAY IF NEEDED
  14. ALBUTEROL [Concomitant]
     Dosage: 200 UG, UP TO 4 TIMES DAILY

REACTIONS (4)
  - SKIN FISSURES [None]
  - SKIN INFECTION [None]
  - SKIN INDURATION [None]
  - SKIN ULCER [None]
